FAERS Safety Report 23241604 (Version 1)
Quarter: 2023Q4

REPORT INFORMATION
  Report Type: Spontaneous
  Country: FR (occurrence: FR)
  Receive Date: 20231129
  Receipt Date: 20231129
  Transmission Date: 20240109
  Serious: Yes (Life-Threatening, Hospitalization)
  Sender: FDA-Public Use
  Company Number: None

PATIENT
  Age: 59 Year
  Sex: Male
  Weight: 100 kg

DRUGS (2)
  1. VERAPAMIL HYDROCHLORIDE [Suspect]
     Active Substance: VERAPAMIL HYDROCHLORIDE
     Indication: Cluster headache
     Dosage: 240 MILLIGRAM, Q8H
     Route: 048
     Dates: end: 20230822
  2. VERAPAMIL HYDROCHLORIDE [Suspect]
     Active Substance: VERAPAMIL HYDROCHLORIDE
     Dosage: 480 MILLIGRAM, Q8H
     Route: 048
     Dates: start: 20230822, end: 20230829

REACTIONS (5)
  - Acute respiratory distress syndrome [Recovered/Resolved]
  - Bundle branch block left [Recovered/Resolved]
  - Atrioventricular block first degree [Recovered/Resolved]
  - Off label use [Recovered/Resolved]
  - Prescribed overdose [Recovered/Resolved]

NARRATIVE: CASE EVENT DATE: 20230822
